FAERS Safety Report 6666607-6 (Version None)
Quarter: 2010Q2

REPORT INFORMATION
  Report Type: 
  Country: None (occurrence: None)
  Receive Date: 20100405
  Receipt Date: 20100330
  Transmission Date: 20101027
  Serious: Yes (Other)
  Sender: FDA-Public Use
  Company Number: US-ASTRAZENECA-2007UW09668

PATIENT
  Age: 40 Year
  Sex: Male
  Weight: 124.7 kg

DRUGS (51)
  1. SEROQUEL [Suspect]
     Indication: SCHIZOPHRENIA
     Route: 048
     Dates: start: 20010328, end: 20030809
  2. SEROQUEL [Suspect]
     Indication: BIPOLAR DISORDER
     Route: 048
     Dates: start: 20010328, end: 20030809
  3. SEROQUEL [Suspect]
     Route: 048
     Dates: start: 20030809
  4. SEROQUEL [Suspect]
     Route: 048
     Dates: start: 20030809
  5. SEROQUEL [Suspect]
     Dosage: 100MG - 400MG, 300 MG AT NIGHT
     Route: 048
     Dates: start: 20040112, end: 20050101
  6. SEROQUEL [Suspect]
     Dosage: 100MG - 400MG, 300 MG AT NIGHT
     Route: 048
     Dates: start: 20040112, end: 20050101
  7. SEROQUEL [Suspect]
     Route: 048
     Dates: start: 20050101, end: 20051006
  8. SEROQUEL [Suspect]
     Route: 048
     Dates: start: 20050101, end: 20051006
  9. SEROQUEL [Suspect]
     Route: 048
     Dates: start: 20050701, end: 20051006
  10. SEROQUEL [Suspect]
     Route: 048
     Dates: start: 20050701, end: 20051006
  11. SEROQUEL [Suspect]
     Route: 048
     Dates: start: 20051006, end: 20060119
  12. SEROQUEL [Suspect]
     Route: 048
     Dates: start: 20051006, end: 20060119
  13. SEROQUEL [Suspect]
     Route: 048
     Dates: start: 20060119, end: 20061003
  14. SEROQUEL [Suspect]
     Route: 048
     Dates: start: 20060119, end: 20061003
  15. SEROQUEL [Suspect]
     Dosage: 300MG 1 QPM AND 2 QHS
     Route: 048
     Dates: start: 20060317
  16. SEROQUEL [Suspect]
     Dosage: 300MG 1 QPM AND 2 QHS
     Route: 048
     Dates: start: 20060317
  17. DEPAKOTE [Concomitant]
     Indication: CONVULSION
     Dates: start: 20030101
  18. DEPAKOTE [Concomitant]
     Indication: BIPOLAR DISORDER
     Dates: start: 20030101
  19. DEPAKOTE [Concomitant]
     Indication: AFFECTIVE DISORDER
     Dates: start: 20030101
  20. DEPAKOTE [Concomitant]
     Dates: start: 20040401
  21. DEPAKOTE [Concomitant]
     Dates: start: 20040401
  22. DEPAKOTE [Concomitant]
     Dates: start: 20040401
  23. DEPAKOTE [Concomitant]
     Route: 048
     Dates: start: 20060317
  24. DEPAKOTE [Concomitant]
     Route: 048
     Dates: start: 20060317
  25. DEPAKOTE [Concomitant]
     Route: 048
     Dates: start: 20060317
  26. NEURONTIN [Concomitant]
     Dosage: 600-1800MG
     Route: 048
     Dates: start: 20041103, end: 20060418
  27. CLONAZEPAM [Concomitant]
     Dates: start: 20031217
  28. VALIUM [Concomitant]
     Route: 048
     Dates: start: 20010101
  29. LEXAPRO [Concomitant]
     Dates: start: 20031022
  30. PROTONIX [Concomitant]
     Dates: start: 20030101
  31. TRAZODONE HCL [Concomitant]
     Dates: start: 20030101
  32. ADVAIR DISKUS 100/50 [Concomitant]
  33. ALBUTEROL SULFATE AUTOHALER [Concomitant]
  34. CARISOPRODOL [Concomitant]
  35. INTERFERON [Concomitant]
  36. AMITRIPTYLINE HCL [Concomitant]
  37. TRILEPTAL [Concomitant]
     Indication: CONVULSION
     Dosage: 300-900 MG
     Route: 048
     Dates: start: 20050712, end: 20070116
  38. TRILEPTAL [Concomitant]
     Indication: AFFECTIVE DISORDER
     Dosage: 300-900 MG
     Route: 048
     Dates: start: 20050712, end: 20070116
  39. TRILEPTAL [Concomitant]
     Indication: BIPOLAR DISORDER
     Dosage: 300-900 MG
     Route: 048
     Dates: start: 20050712, end: 20070116
  40. TEQUIN [Concomitant]
     Dates: start: 20060112
  41. NIASPAN [Concomitant]
     Route: 048
     Dates: start: 20060317
  42. LYRICA [Concomitant]
     Dosage: 50MG, 75MG, 100MG
     Route: 048
     Dates: start: 20060201
  43. TEMAZEPAM [Concomitant]
  44. CYMBALTA [Concomitant]
     Dates: start: 20061001
  45. ABILIFY [Concomitant]
     Dates: start: 20060701, end: 20061101
  46. LAMICTAL CD [Concomitant]
     Dates: start: 20010101
  47. CELEBREX [Concomitant]
     Route: 048
     Dates: start: 20070507
  48. ZYPREXA [Concomitant]
     Dates: start: 20010701, end: 20030401
  49. RISPERDAL [Concomitant]
  50. GEODON [Concomitant]
     Dosage: 80-160 MG
     Dates: start: 20060501, end: 20060601
  51. THORAZINE [Concomitant]

REACTIONS (17)
  - ABDOMINAL PAIN UPPER [None]
  - CHEST PAIN [None]
  - DIABETES WITH HYPEROSMOLARITY [None]
  - DIABETIC FOOT [None]
  - DYSLIPIDAEMIA [None]
  - HEPATIC CIRRHOSIS [None]
  - HEPATITIS C [None]
  - HYPERTRIGLYCERIDAEMIA [None]
  - IMPAIRED FASTING GLUCOSE [None]
  - MENTAL DISORDER [None]
  - MUSCULAR WEAKNESS [None]
  - NEUROPATHY PERIPHERAL [None]
  - PNEUMONIA [None]
  - PULMONARY SARCOIDOSIS [None]
  - SARCOIDOSIS [None]
  - TYPE 2 DIABETES MELLITUS [None]
  - VISION BLURRED [None]
